FAERS Safety Report 17424124 (Version 1)
Quarter: 2020Q1

REPORT INFORMATION
  Report Type: Spontaneous
  Country: GB (occurrence: GB)
  Receive Date: 20200217
  Receipt Date: 20200217
  Transmission Date: 20200409
  Serious: Yes (Life-Threatening)
  Sender: FDA-Public Use
  Company Number: GB-TEVA-2020-GB-1186097

PATIENT
  Age: 56 Year
  Sex: Female

DRUGS (5)
  1. OMEPRAZOLE. [Concomitant]
     Active Substance: OMEPRAZOLE
  2. CODEINE [Concomitant]
     Active Substance: CODEINE
  3. PARACETAMOL [Concomitant]
     Active Substance: ACETAMINOPHEN
  4. PREDNISOLONE. [Suspect]
     Active Substance: PREDNISOLONE
     Indication: SKIN REACTION
     Route: 048
     Dates: start: 20200116, end: 20200120
  5. AMOXICILLIN. [Concomitant]
     Active Substance: AMOXICILLIN

REACTIONS (1)
  - Anaphylactic reaction [Recovered/Resolved]

NARRATIVE: CASE EVENT DATE: 20200120
